FAERS Safety Report 13907081 (Version 1)
Quarter: 2017Q3

REPORT INFORMATION
  Report Type: Spontaneous
  Country: CN (occurrence: CN)
  Receive Date: 20170825
  Receipt Date: 20170825
  Transmission Date: 20171127
  Serious: Yes (Hospitalization, Other)
  Sender: FDA-Public Use
  Company Number: CN-ELI_LILLY_AND_COMPANY-CN201708005835

PATIENT
  Age: 49 Year
  Sex: Male
  Weight: 51 kg

DRUGS (1)
  1. HUMULIN 70/30 [Suspect]
     Active Substance: INSULIN HUMAN
     Indication: DIABETES MELLITUS
     Dosage: 20 U, BID
     Route: 058
     Dates: start: 20170202, end: 20170508

REACTIONS (5)
  - Anaphylactic shock [Recovering/Resolving]
  - Blood glucose decreased [Recovering/Resolving]
  - Blood potassium decreased [Recovering/Resolving]
  - Decreased appetite [Recovering/Resolving]
  - Mood altered [Recovering/Resolving]

NARRATIVE: CASE EVENT DATE: 20170508
